FAERS Safety Report 5993552-1 (Version None)
Quarter: 2008Q4

REPORT INFORMATION
  Report Type: 
  Country: None (occurrence: None)
  Receive Date: 20081212
  Receipt Date: 20081204
  Transmission Date: 20090506
  Serious: Yes (Other)
  Sender: FDA-Public Use
  Company Number: PHHY2008KR30073

PATIENT
  Sex: Male

DRUGS (1)
  1. EXFORGE [Suspect]
     Dosage: UNK
     Route: 048
     Dates: start: 20071101

REACTIONS (2)
  - CALCULUS BLADDER [None]
  - CEREBROVASCULAR ACCIDENT [None]
